FAERS Safety Report 9902650 (Version 1)
Quarter: 2014Q1

REPORT INFORMATION
  Report Type: Spontaneous
  Country: BR (occurrence: BR)
  Receive Date: 20140217
  Receipt Date: 20140217
  Transmission Date: 20141002
  Serious: Yes (Other)
  Sender: FDA-Public Use
  Company Number: BR-JNJFOC-20140204896

PATIENT
  Age: 28 Year
  Sex: Female

DRUGS (2)
  1. TYLEX [Suspect]
     Indication: SPINAL PAIN
     Route: 065
     Dates: start: 20140205
  2. MESIGYNA [Concomitant]
     Indication: CONTRACEPTION
     Route: 065

REACTIONS (6)
  - Memory impairment [Recovered/Resolved]
  - Vision blurred [Recovered/Resolved]
  - Fatigue [Recovered/Resolved]
  - Dizziness [Not Recovered/Not Resolved]
  - Nausea [Not Recovered/Not Resolved]
  - Hyperhidrosis [Recovered/Resolved]
